FAERS Safety Report 7604959-0 (Version None)
Quarter: 2011Q3

REPORT INFORMATION
  Report Type: 
  Country: None (occurrence: None)
  Receive Date: 20110713
  Receipt Date: 20110705
  Transmission Date: 20111222
  Serious: No
  Sender: FDA-Public Use
  Company Number: US-BIOGENIDEC-2010BI028939

PATIENT
  Sex: Female

DRUGS (1)
  1. TYSABRI [Suspect]
     Indication: MULTIPLE SCLEROSIS
     Route: 042
     Dates: start: 20090123

REACTIONS (5)
  - MEMORY IMPAIRMENT [None]
  - FATIGUE [None]
  - NAUSEA [None]
  - DIARRHOEA [None]
  - CHILLS [None]
